FAERS Safety Report 18054369 (Version 1)
Quarter: 2020Q3

REPORT INFORMATION
  Report Type: Spontaneous
  Country: US (occurrence: US)
  Receive Date: 20200722
  Receipt Date: 20200722
  Transmission Date: 20201103
  Serious: Yes (Death, Hospitalization)
  Sender: FDA-Public Use
  Company Number: None

PATIENT
  Age: 75 Year
  Sex: Male
  Weight: 105 kg

DRUGS (1)
  1. PREDNISONE. [Suspect]
     Active Substance: PREDNISONE
     Indication: CHRONIC OBSTRUCTIVE PULMONARY DISEASE
     Route: 048
     Dates: start: 20200311, end: 20200702

REACTIONS (5)
  - Diabetic ketoacidosis [None]
  - Respiratory arrest [None]
  - Gastrointestinal haemorrhage [None]
  - Atrial fibrillation [None]
  - Sepsis [None]

NARRATIVE: CASE EVENT DATE: 20200702
